FAERS Safety Report 5344752-5 (Version None)
Quarter: 2007Q2

REPORT INFORMATION
  Report Type: 
  Country: None (occurrence: None)
  Receive Date: 20070604
  Receipt Date: 20070525
  Transmission Date: 20071010
  Serious: Yes (Hospitalization)
  Sender: FDA-Public Use
  Company Number: GB-ABBOTT-07P-167-0369557-00

PATIENT
  Age: 40 Year
  Sex: Female

DRUGS (4)
  1. KALETRA [Suspect]
     Indication: HIV INFECTION
     Dates: start: 20010101
  2. NORVIR [Suspect]
     Indication: HIV INFECTION
     Dates: start: 20060608
  3. TRUVADA [Suspect]
     Indication: HIV INFECTION
     Dates: start: 20010101
  4. ATAZANAVIR SULFATE [Suspect]
     Indication: HIV INFECTION
     Dates: start: 20060608

REACTIONS (3)
  - NEUROPATHY PERIPHERAL [None]
  - PARTIAL SEIZURES [None]
  - PETIT MAL EPILEPSY [None]
